FAERS Safety Report 9739442 (Version 2)
Quarter: 2013Q4

REPORT INFORMATION
  Report Type: Spontaneous
  Country: JP (occurrence: JP)
  Receive Date: 20131209
  Receipt Date: 20131209
  Transmission Date: 20140711
  Serious: Yes (Hospitalization, Other)
  Sender: FDA-Public Use
  Company Number: JP-009507513-1008USA03043

PATIENT
  Age: 70 Year
  Sex: Male
  Weight: 66 kg

DRUGS (3)
  1. LIPOVAS TABLETS - 10 [Suspect]
     Indication: HYPERLIPIDAEMIA
     Dosage: 5 MG, QD
     Route: 048
     Dates: start: 2008, end: 20100707
  2. HERBESSER [Suspect]
     Indication: MYOCARDIAL INFARCTION
     Dosage: 30 MG, BID
     Route: 048
     Dates: end: 20100707
  3. FRANDOL [Suspect]
     Indication: MYOCARDIAL INFARCTION
     Dosage: 20 MG, BID
     Route: 048
     Dates: end: 20100707

REACTIONS (2)
  - Autoimmune hepatitis [Recovering/Resolving]
  - Immune thrombocytopenic purpura [Recovering/Resolving]
